FAERS Safety Report 9329351 (Version 1)
Quarter: 2013Q2

REPORT INFORMATION
  Report Type: Spontaneous
  Country: AU (occurrence: AU)
  Receive Date: 20130604
  Receipt Date: 20130604
  Transmission Date: 20140414
  Serious: Yes (Other)
  Sender: FDA-Public Use
  Company Number: AU-GLAXOSMITHKLINE-B0896355A

PATIENT
  Age: 57 Year
  Sex: 0

DRUGS (1)
  1. ZOVIRAX [Suspect]
     Indication: GENITAL HERPES
     Route: 061

REACTIONS (3)
  - VIIth nerve paralysis [Unknown]
  - Systemic lupus erythematosus [Recovered/Resolved]
  - Off label use [Unknown]
